FAERS Safety Report 8729821 (Version 3)
Quarter: 2012Q4

REPORT INFORMATION
  Report Type: Report from Study
  Country: US (occurrence: US)
  Receive Date: 20120817
  Receipt Date: 20121107
  Transmission Date: 20130627
  Serious: Yes (Life-Threatening, Hospitalization)
  Sender: FDA-Public Use
  Company Number: US-JNJFOC-20120803743

PATIENT
  Age: 53 Year
  Sex: Male
  Weight: 94.8 kg

DRUGS (3)
  1. STELARA [Suspect]
     Indication: PSORIASIS
     Route: 058
     Dates: start: 20101015, end: 20111222
  2. PRILOSEC [Concomitant]
  3. ALEVE [Concomitant]

REACTIONS (1)
  - Guillain-Barre syndrome [Recovering/Resolving]
